FAERS Safety Report 9808726 (Version 2)
Quarter: 2014Q2

REPORT INFORMATION
  Report Type: Spontaneous
  Country: US (occurrence: US)
  Receive Date: 20140110
  Receipt Date: 20140407
  Transmission Date: 20141212
  Serious: Yes (Other)
  Sender: FDA-Public Use
  Company Number: US-PERRIGO-14US000103

PATIENT
  Age: 77 Year
  Sex: Male
  Weight: 74.83 kg

DRUGS (5)
  1. TUSSIN PE CF LIQ 516 [Suspect]
     Indication: NASAL CONGESTION
     Dosage: 10 ML, EVERY 4 HOURS
     Route: 048
     Dates: start: 20131230, end: 20131231
  2. TUSSIN PE CF LIQ 516 [Suspect]
     Indication: RHINORRHOEA
  3. LEVOTHYROXINE [Suspect]
     Indication: HYPOTHYROIDISM
     Dosage: UNK, UNK
     Route: 048
  4. BETA BLOCKING AGENTS [Concomitant]
     Indication: HYPERTENSION
     Dosage: UNK, UNK
     Route: 065
     Dates: start: 2013
  5. LIPITOR [Concomitant]
     Indication: BLOOD CHOLESTEROL INCREASED
     Dosage: UNK, UNK
     Route: 048

REACTIONS (4)
  - Loss of consciousness [Recovered/Resolved]
  - Dizziness [Recovered/Resolved]
  - Nausea [Recovered/Resolved]
  - Drug interaction [Unknown]
